FAERS Safety Report 21592808 (Version 1)
Quarter: 2022Q4

REPORT INFORMATION
  Report Type: Spontaneous
  Country: US (occurrence: US)
  Receive Date: 20221114
  Receipt Date: 20221114
  Transmission Date: 20230113
  Serious: No
  Sender: FDA-Public Use
  Company Number: US-SCALL-2021-US-024498

PATIENT
  Sex: Female

DRUGS (1)
  1. COREG CR [Suspect]
     Active Substance: CARVEDILOL PHOSPHATE
     Indication: Product used for unknown indication
     Route: 065
     Dates: start: 2016

REACTIONS (5)
  - Hypoaesthesia [Unknown]
  - Inflammation [Unknown]
  - Headache [Unknown]
  - Panic attack [Unknown]
  - Feeling cold [Unknown]

NARRATIVE: CASE EVENT DATE: 20211001
